FAERS Safety Report 11102959 (Version 1)
Quarter: 2015Q2

REPORT INFORMATION
  Report Type: Report from Study
  Country: US (occurrence: US)
  Receive Date: 20150511
  Receipt Date: 20150511
  Transmission Date: 20150821
  Serious: Yes (Other)
  Sender: FDA-Public Use
  Company Number: US-JNJFOC-20150502062

PATIENT
  Sex: Female

DRUGS (1)
  1. STELARA [Suspect]
     Active Substance: USTEKINUMAB
     Indication: PSORIASIS
     Route: 058
     Dates: end: 2015

REACTIONS (1)
  - Lung neoplasm malignant [Not Recovered/Not Resolved]

NARRATIVE: CASE EVENT DATE: 2015
